FAERS Safety Report 7442014-3 (Version None)
Quarter: 2011Q2

REPORT INFORMATION
  Report Type: 
  Country: None (occurrence: None)
  Receive Date: 20110428
  Receipt Date: 20110426
  Transmission Date: 20111010
  Serious: Yes (Other)
  Sender: FDA-Public Use
  Company Number: US-ABBOTT-11P-163-0721981-00

PATIENT
  Sex: Male

DRUGS (5)
  1. FLONASE [Concomitant]
     Indication: HYPERSENSITIVITY
     Route: 045
  2. ZYRTEC [Concomitant]
     Indication: HYPERSENSITIVITY
     Dosage: DAILY
  3. QVAR 40 [Concomitant]
     Indication: ASTHMA
     Route: 045
  4. PROAIR HFA [Concomitant]
     Indication: ASTHMA
  5. HUMIRA [Suspect]
     Indication: PSORIASIS
     Dates: start: 20110211, end: 20110305

REACTIONS (3)
  - DIVERTICULAR PERFORATION [None]
  - DIVERTICULITIS [None]
  - SINUSITIS [None]
